FAERS Safety Report 16043716 (Version 4)
Quarter: 2019Q3

REPORT INFORMATION
  Report Type: Spontaneous
  Country: US (occurrence: US)
  Receive Date: 20190306
  Receipt Date: 20190930
  Transmission Date: 20191004
  Serious: Yes (Hospitalization, Other)
  Sender: FDA-Public Use
  Company Number: US-ASTRAZENECA-2018SF00453

PATIENT
  Age: 727 Month
  Sex: Male

DRUGS (37)
  1. BUPROPION. [Concomitant]
     Active Substance: BUPROPION
  2. FUROSEMIDE. [Concomitant]
     Active Substance: FUROSEMIDE
  3. CHOLECALCIFEROL [Concomitant]
     Active Substance: CHOLECALCIFEROL
  4. METOPROLOL TARTRATE. [Concomitant]
     Active Substance: METOPROLOL TARTRATE
  5. AMLODIPINE BESYLATE. [Concomitant]
     Active Substance: AMLODIPINE BESYLATE
  6. METFORMIN HCL [Concomitant]
     Active Substance: METFORMIN HYDROCHLORIDE
  7. GEMFIBROZIL. [Concomitant]
     Active Substance: GEMFIBROZIL
  8. OXYCODONE [Concomitant]
     Active Substance: OXYCODONE
  9. QUETIAPINE. [Concomitant]
     Active Substance: QUETIAPINE
  10. LEVOTHYROXINE. [Concomitant]
     Active Substance: LEVOTHYROXINE
  11. PRAZOSIN. [Concomitant]
     Active Substance: PRAZOSIN
  12. LOSARTAN. [Concomitant]
     Active Substance: LOSARTAN
  13. ZEGERID [Suspect]
     Active Substance: OMEPRAZOLE\SODIUM BICARBONATE
     Indication: GASTROOESOPHAGEAL REFLUX DISEASE
     Route: 065
     Dates: start: 2005, end: 2018
  14. TAMSULOSIN [Concomitant]
     Active Substance: TAMSULOSIN
  15. OXYCODONE [Concomitant]
     Active Substance: OXYCODONE
  16. PANTOPRAZOLE [Suspect]
     Active Substance: PANTOPRAZOLE
     Indication: GASTROOESOPHAGEAL REFLUX DISEASE
     Route: 065
  17. BUDESONIDE. [Concomitant]
     Active Substance: BUDESONIDE
  18. SPIRONOLACTONE. [Concomitant]
     Active Substance: SPIRONOLACTONE
  19. METOCLOPRAMIDE. [Concomitant]
     Active Substance: METOCLOPRAMIDE
  20. GEMFIBROZIL. [Concomitant]
     Active Substance: GEMFIBROZIL
  21. PRILOSEC [Suspect]
     Active Substance: OMEPRAZOLE MAGNESIUM
     Indication: GASTROOESOPHAGEAL REFLUX DISEASE
     Dosage: GENERIC
     Route: 048
  22. PROPRANOLOL [Concomitant]
     Active Substance: PROPRANOLOL HYDROCHLORIDE
  23. LISINOPRIL. [Concomitant]
     Active Substance: LISINOPRIL
  24. PRILOSEC [Suspect]
     Active Substance: OMEPRAZOLE MAGNESIUM
     Indication: GASTROOESOPHAGEAL REFLUX DISEASE
     Dosage: GENERIC
     Route: 065
     Dates: start: 2005, end: 2018
  25. PANTOPRAZOLE [Suspect]
     Active Substance: PANTOPRAZOLE
     Indication: GASTROOESOPHAGEAL REFLUX DISEASE
     Route: 065
     Dates: start: 2005, end: 2018
  26. ALBUTEROL. [Concomitant]
     Active Substance: ALBUTEROL
  27. PRILOSEC [Suspect]
     Active Substance: OMEPRAZOLE MAGNESIUM
     Indication: GASTROOESOPHAGEAL REFLUX DISEASE
     Route: 048
     Dates: start: 2005, end: 2018
  28. NICOTINE. [Concomitant]
     Active Substance: NICOTINE
  29. INSULIN GLARGINE [Concomitant]
     Active Substance: INSULIN GLARGINE
  30. DEXTROSE. [Concomitant]
     Active Substance: DEXTROSE
  31. AMLODIPINE [Concomitant]
     Active Substance: AMLODIPINE BESYLATE
  32. VITAMIN D [Concomitant]
     Active Substance: VITAMIN D NOS
  33. POTASSIUM CALCIUM [Concomitant]
  34. ASPIRIN. [Concomitant]
     Active Substance: ASPIRIN
  35. GLIPIZIDE. [Concomitant]
     Active Substance: GLIPIZIDE
  36. DIPHENHYDRAMINE. [Concomitant]
     Active Substance: DIPHENHYDRAMINE
  37. GLIPIZIDE. [Concomitant]
     Active Substance: GLIPIZIDE

REACTIONS (2)
  - Chronic kidney disease [Unknown]
  - End stage renal disease [Not Recovered/Not Resolved]

NARRATIVE: CASE EVENT DATE: 201706
